FAERS Safety Report 5071927-5 (Version None)
Quarter: 2006Q3

REPORT INFORMATION
  Report Type: 
  Country: None (occurrence: None)
  Receive Date: 20060804
  Receipt Date: 20060725
  Transmission Date: 20061208
  Serious: Yes (Other)
  Sender: FDA-Public Use
  Company Number: DE-ABBOTT-06P-062-0338873-00

PATIENT
  Sex: Male

DRUGS (6)
  1. ERGENYL SACHET [Suspect]
     Indication: CONVULSION
     Dates: start: 20060503, end: 20060504
  2. ERGENYL SACHET [Suspect]
     Indication: TREMOR
     Route: 050
     Dates: start: 20060504, end: 20060607
  3. ERGENYL SACHET [Suspect]
     Route: 050
     Dates: start: 20060608, end: 20060609
  4. ERGENYL SACHET [Suspect]
     Dates: start: 20060515
  5. ERGENYL SACHET [Suspect]
  6. LAMOTRIGINE [Suspect]
     Indication: DRUG USE FOR UNKNOWN INDICATION
     Dates: start: 20060515

REACTIONS (4)
  - DISTURBANCE IN ATTENTION [None]
  - DRUG INEFFECTIVE [None]
  - GRAND MAL CONVULSION [None]
  - SOMNOLENCE [None]
